FAERS Safety Report 25024631 (Version 1)
Quarter: 2025Q1

REPORT INFORMATION
  Report Type: Spontaneous
  Country: US (occurrence: None)
  Receive Date: 20250228
  Receipt Date: 20250228
  Transmission Date: 20250408
  Serious: Yes (Other)
  Sender: FDA-CTU
  Company Number: None

PATIENT
  Age: 10 Year
  Sex: Male
  Weight: 44 kg

DRUGS (2)
  1. BIVIGAM [Suspect]
     Active Substance: HUMAN IMMUNOGLOBULIN G
     Indication: Immune system disorder
     Route: 042
     Dates: start: 20250225, end: 20250225
  2. BIVIGAM [Concomitant]
     Active Substance: HUMAN IMMUNOGLOBULIN G
     Dates: start: 20250225, end: 20250225

REACTIONS (3)
  - Adverse reaction [None]
  - Recalled product [None]
  - Recalled product administered [None]

NARRATIVE: CASE EVENT DATE: 20250225
